FAERS Safety Report 25996167 (Version 1)
Quarter: 2025Q4

REPORT INFORMATION
  Report Type: Spontaneous
  Country: CA (occurrence: CA)
  Receive Date: 20251104
  Receipt Date: 20251104
  Transmission Date: 20260117
  Serious: Yes (Hospitalization, Other)
  Sender: PFIZER
  Company Number: CA-PFIZER INC-202500214495

PATIENT
  Age: 80 Year
  Sex: Male

DRUGS (1)
  1. ABRILADA [Suspect]
     Active Substance: ADALIMUMAB-AFZB
     Indication: Psoriasis
     Dosage: 1 DF (80MG WEEK 0, THEN 40MG EVERY OTHER WEEK)
     Route: 058
     Dates: start: 20240223

REACTIONS (3)
  - Rectal haemorrhage [Unknown]
  - Haemoglobin decreased [Unknown]
  - Gastrointestinal disorder [Unknown]

NARRATIVE: CASE EVENT DATE: 20250101
